FAERS Safety Report 21126886 (Version 2)
Quarter: 2022Q3

REPORT INFORMATION
  Report Type: Spontaneous
  Country: US (occurrence: US)
  Receive Date: 20220725
  Receipt Date: 20220801
  Transmission Date: 20221026
  Serious: No
  Sender: FDA-Public Use
  Company Number: US-BIOGEN-2022BI01141688

PATIENT
  Age: 23 Year
  Sex: Male

DRUGS (1)
  1. SPINRAZA [Suspect]
     Active Substance: NUSINERSEN
     Indication: Spinal muscular atrophy
     Route: 050

REACTIONS (5)
  - Post lumbar puncture syndrome [Unknown]
  - Nausea [Unknown]
  - Headache [Recovered/Resolved]
  - Vomiting [Unknown]
  - Procedural pain [Unknown]

NARRATIVE: CASE EVENT DATE: 20220717
